FAERS Safety Report 8799285 (Version 2)
Quarter: 2013Q2

REPORT INFORMATION
  Report Type: Spontaneous
  Country: GB (occurrence: None)
  Receive Date: 20120914
  Receipt Date: 20130529
  Transmission Date: 20140414
  Serious: Yes (Other)
  Sender: FDA-Public Use
  Company Number: GB-DEXPHARM-20121239

PATIENT
  Age: 53 Year
  Sex: Male

DRUGS (4)
  1. OMEPRAZOLE [Suspect]
     Indication: HIATUS HERNIA
     Route: 048
     Dates: start: 20071116, end: 20120801
  2. OMEPRAZOLE [Suspect]
     Indication: GASTROOESOPHAGEAL REFLUX DISEASE
     Route: 048
     Dates: start: 20071116, end: 20120801
  3. RANITIDINE [Suspect]
     Dates: start: 20120801, end: 20120816
  4. CO-CODAMOL [Concomitant]

REACTIONS (25)
  - Anaemia [None]
  - Breast disorder male [None]
  - Dyspnoea [None]
  - Confusional state [None]
  - Depression [None]
  - Dry eye [None]
  - Dry mouth [None]
  - Fall [None]
  - Headache [None]
  - Hyperchlorhydria [None]
  - Muscular weakness [None]
  - Erythema [None]
  - Oedema peripheral [None]
  - Tremor [None]
  - Angiopathy [None]
  - Visual acuity reduced [None]
  - Photopsia [None]
  - Weight decreased [None]
  - Pain [None]
  - Osteopenia [None]
  - Skin burning sensation [None]
  - Intestinal haemorrhage [None]
  - Mouth haemorrhage [None]
  - Vitreous detachment [None]
  - Vitamin D deficiency [None]
